FAERS Safety Report 12079772 (Version 1)
Quarter: 2016Q1

REPORT INFORMATION
  Report Type: Report from Study
  Country: US (occurrence: US)
  Receive Date: 20160216
  Receipt Date: 20160216
  Transmission Date: 20160526
  Serious: Yes (Hospitalization)
  Sender: FDA-Public Use
  Company Number: US-BIOGEN-2007BI024837

PATIENT
  Age: 29 Year
  Sex: Male

DRUGS (3)
  1. TYSABRI [Suspect]
     Active Substance: NATALIZUMAB
     Route: 042
     Dates: start: 20130214, end: 20130702
  2. TYSABRI [Suspect]
     Active Substance: NATALIZUMAB
     Indication: MULTIPLE SCLEROSIS
     Route: 042
     Dates: start: 20070327, end: 20120229
  3. TYSABRI [Suspect]
     Active Substance: NATALIZUMAB
     Route: 042

REACTIONS (3)
  - Multiple sclerosis [Not Recovered/Not Resolved]
  - Glioblastoma [Not Recovered/Not Resolved]
  - Astrocytoma [Recovered/Resolved]

NARRATIVE: CASE EVENT DATE: 201011
